FAERS Safety Report 6337307-7 (Version None)
Quarter: 2009Q3

REPORT INFORMATION
  Report Type: 
  Country: None (occurrence: None)
  Receive Date: 20090828
  Receipt Date: 20090828
  Transmission Date: 20100115
  Serious: Yes (Hospitalization)
  Sender: FDA-Public Use
  Company Number: None

PATIENT
  Age: 29 Year
  Sex: Female
  Weight: 49.8957 kg

DRUGS (4)
  1. LUPRON [Suspect]
     Indication: ADHESION
     Dates: start: 20071031, end: 20080305
  2. LUPRON [Suspect]
     Indication: UTERINE LEIOMYOMA
     Dates: start: 20071031, end: 20080305
  3. LUPRON [Suspect]
     Indication: ADHESION
     Dates: start: 20080116, end: 20080807
  4. LUPRON [Suspect]
     Indication: UTERINE LEIOMYOMA
     Dates: start: 20080116, end: 20080807

REACTIONS (6)
  - BLOOD CHOLESTEROL INCREASED [None]
  - BLOOD URINE PRESENT [None]
  - CONVULSION [None]
  - DIPLOPIA [None]
  - DYSARTHRIA [None]
  - VISION BLURRED [None]
